FAERS Safety Report 16975633 (Version 1)
Quarter: 2019Q4

REPORT INFORMATION
  Report Type: Spontaneous
  Country: US (occurrence: US)
  Receive Date: 20191030
  Receipt Date: 20191030
  Transmission Date: 20200122
  Serious: No
  Sender: FDA-Public Use
  Company Number: US-COVIS PHARMA B.V.-2019COV00125

PATIENT
  Sex: Male

DRUGS (1)
  1. ALVESCO [Suspect]
     Active Substance: CICLESONIDE

REACTIONS (7)
  - Tongue discomfort [Unknown]
  - Chest discomfort [Unknown]
  - Arthralgia [Unknown]
  - Headache [Unknown]
  - Wheezing [Unknown]
  - Dysgeusia [Unknown]
  - Neck pain [Unknown]
